FAERS Safety Report 6179019-9 (Version None)
Quarter: 2009Q2

REPORT INFORMATION
  Report Type: 
  Country: None (occurrence: None)
  Receive Date: 20090505
  Receipt Date: 20090424
  Transmission Date: 20091009
  Serious: Yes (Other)
  Sender: FDA-Public Use
  Company Number: JP-JNJFOC-20080902567

PATIENT
  Sex: Male
  Weight: 86 kg

DRUGS (12)
  1. REMICADE [Suspect]
     Route: 042
  2. REMICADE [Suspect]
     Route: 042
  3. REMICADE [Suspect]
     Route: 042
  4. REMICADE [Suspect]
     Route: 042
  5. REMICADE [Suspect]
     Route: 042
  6. REMICADE [Suspect]
     Route: 042
  7. REMICADE [Suspect]
     Route: 042
  8. REMICADE [Suspect]
     Route: 042
  9. REMICADE [Suspect]
     Indication: CROHN'S DISEASE
     Dosage: 5 INFUSIONS
     Route: 042
  10. ALLELOCK [Concomitant]
     Indication: PREMEDICATION
     Dosage: 1 TABLET DAILY
     Route: 048
  11. DECADRON [Concomitant]
     Route: 048
  12. DECADRON [Concomitant]
     Indication: PREMEDICATION
     Route: 048

REACTIONS (6)
  - ANGIOPATHY [None]
  - DIZZINESS [None]
  - HYPOAESTHESIA [None]
  - INFUSION SITE PAIN [None]
  - MUSCULAR WEAKNESS [None]
  - PRURITUS GENERALISED [None]
